FAERS Safety Report 5565377-2 (Version None)
Quarter: 2007Q4

REPORT INFORMATION
  Report Type: 
  Country: None (occurrence: None)
  Receive Date: 20071218
  Receipt Date: 20071206
  Transmission Date: 20080405
  Serious: Yes (Hospitalization, Other)
  Sender: FDA-Public Use
  Company Number: US-PFIZER INC-2007097372

PATIENT
  Sex: Female
  Weight: 47.272 kg

DRUGS (6)
  1. CHANTIX [Suspect]
     Indication: SMOKING CESSATION THERAPY
     Dates: start: 20071019, end: 20071201
  2. WELLBUTRIN [Interacting]
     Indication: DEPRESSION
  3. MUCINEX [Interacting]
     Dates: start: 20071103, end: 20071104
  4. LORAZEPAM [Suspect]
  5. BENADRYL [Suspect]
  6. VITAMINS [Concomitant]

REACTIONS (20)
  - AGITATION [None]
  - BLOOD PRESSURE INCREASED [None]
  - CONVULSION [None]
  - CRYING [None]
  - DEPRESSION [None]
  - DISTURBANCE IN ATTENTION [None]
  - DIZZINESS [None]
  - DRUG INTERACTION [None]
  - FEELING OF DESPAIR [None]
  - INTENTIONAL DRUG MISUSE [None]
  - OBSESSIVE-COMPULSIVE DISORDER [None]
  - PANIC REACTION [None]
  - SELF-INJURIOUS IDEATION [None]
  - SEROTONIN SYNDROME [None]
  - SOCIAL AVOIDANT BEHAVIOUR [None]
  - SOMNOLENCE [None]
  - TACHYCARDIA [None]
  - TINNITUS [None]
  - TREMOR [None]
  - VISION BLURRED [None]
